FAERS Safety Report 8461011-2 (Version None)
Quarter: 2012Q2

REPORT INFORMATION
  Report Type: 
  Country: None (occurrence: None)
  Receive Date: 20120625
  Receipt Date: 20120614
  Transmission Date: 20120825
  Serious: No
  Sender: FDA-Public Use
  Company Number: US-BIOGENIDEC-2012BI021282

PATIENT
  Age: 54 Year
  Sex: Female

DRUGS (4)
  1. TYSABRI [Suspect]
     Indication: MULTIPLE SCLEROSIS
     Route: 042
     Dates: start: 20120412
  2. ANTI DEPRESSANT [Concomitant]
     Indication: DEPRESSION
  3. ACETAMINOPHEN [Concomitant]
     Indication: PREMEDICATION
  4. CLARITIN [Concomitant]
     Indication: PREMEDICATION

REACTIONS (6)
  - CHILLS [None]
  - UNDERDOSE [None]
  - VOMITING [None]
  - FLUSHING [None]
  - GASTROINTESTINAL VIRAL INFECTION [None]
  - PALLOR [None]
